FAERS Safety Report 20718261 (Version 2)
Quarter: 2023Q2

REPORT INFORMATION
  Report Type: Spontaneous
  Country: US (occurrence: US)
  Receive Date: 20220418
  Receipt Date: 20230515
  Transmission Date: 20230721
  Serious: Yes (Other)
  Sender: FDA-Public Use
  Company Number: US-UCBSA-2021012401

PATIENT
  Sex: Female
  Weight: 102 kg

DRUGS (1)
  1. NEUPRO [Suspect]
     Active Substance: ROTIGOTINE
     Indication: Restless legs syndrome
     Dosage: 4 MILLIGRAM, ONCE DAILY (QD)
     Route: 062
     Dates: start: 2018

REACTIONS (3)
  - Visual impairment [Not Recovered/Not Resolved]
  - Blood cholesterol increased [Unknown]
  - Overdose [Unknown]

NARRATIVE: CASE EVENT DATE: 20180101
